FAERS Safety Report 9167389 (Version 1)
Quarter: 2013Q1

REPORT INFORMATION
  Report Type: Spontaneous
  Country: AU (occurrence: AU)
  Receive Date: 20130318
  Receipt Date: 20130318
  Transmission Date: 20140127
  Serious: Yes (Other)
  Sender: FDA-Public Use
  Company Number: AU-JNJFOC-20130303009

PATIENT
  Sex: Female

DRUGS (10)
  1. DUROGESIC [Suspect]
     Indication: BACK PAIN
     Route: 062
     Dates: end: 20130216
  2. DUROGESIC [Suspect]
     Indication: BACK PAIN
     Route: 062
  3. DUROGESIC [Suspect]
     Indication: BACK PAIN
     Route: 062
  4. DUROGESIC [Suspect]
     Indication: BACK PAIN
     Route: 062
  5. DUROGESIC [Suspect]
     Indication: INTERVERTEBRAL DISC PROTRUSION
     Route: 062
  6. DUROGESIC [Suspect]
     Indication: INTERVERTEBRAL DISC PROTRUSION
     Route: 062
  7. DUROGESIC [Suspect]
     Indication: INTERVERTEBRAL DISC PROTRUSION
     Route: 062
  8. DUROGESIC [Suspect]
     Indication: INTERVERTEBRAL DISC PROTRUSION
     Route: 062
     Dates: end: 20130216
  9. OXYNORM [Suspect]
     Indication: BACK PAIN
     Route: 065
     Dates: end: 20130216
  10. OXYNORM [Suspect]
     Indication: INTERVERTEBRAL DISC PROTRUSION
     Route: 065
     Dates: end: 20130216

REACTIONS (5)
  - Withdrawal syndrome [Recovered/Resolved]
  - Product quality issue [Not Recovered/Not Resolved]
  - Treatment noncompliance [Unknown]
  - Malaise [Unknown]
  - Allodynia [Unknown]
